FAERS Safety Report 8992015 (Version 2)
Quarter: 2013Q1

REPORT INFORMATION
  Report Type: Spontaneous
  Country: JP (occurrence: JP)
  Receive Date: 20121231
  Receipt Date: 20130122
  Transmission Date: 20140127
  Serious: Yes (Death)
  Sender: FDA-Public Use
  Company Number: PHHY2012JP103947

PATIENT
  Age: 82 Year
  Sex: Female

DRUGS (4)
  1. EXELON PATCH [Suspect]
     Indication: DEMENTIA ALZHEIMER^S TYPE
     Dosage: 4.5 MG, DAILY
     Route: 062
     Dates: start: 20121102, end: 20121105
  2. PENTCILLIN [Suspect]
     Dosage: 2 G, DAILY
     Dates: start: 20121102, end: 20121104
  3. TAKEPRON [Concomitant]
     Dosage: 15 MG, UNK
  4. ALOSENN [Concomitant]
     Dosage: 0.5 DF, UNK

REACTIONS (4)
  - General physical health deterioration [Fatal]
  - Pneumonia [Fatal]
  - Dysphagia [Fatal]
  - Blood creatine phosphokinase increased [Recovering/Resolving]
